FAERS Safety Report 21940266 (Version 1)
Quarter: 2023Q1

REPORT INFORMATION
  Report Type: Report from Study
  Country: US (occurrence: US)
  Receive Date: 20230201
  Receipt Date: 20230201
  Transmission Date: 20230418
  Serious: No
  Sender: FDA-Public Use
  Company Number: US-EXELIXIS-CABO-22050294

PATIENT
  Sex: Male

DRUGS (19)
  1. CABOMETYX [Suspect]
     Active Substance: CABOZANTINIB S-MALATE
     Indication: Prostate cancer
     Dosage: 40 MG, QD
     Dates: start: 20220228, end: 20220515
  2. OPDIVO [Suspect]
     Active Substance: NIVOLUMAB
     Indication: Prostate cancer
     Dosage: UNK, Q4WEEKS
  3. LISINOPRIL [Concomitant]
     Active Substance: LISINOPRIL
     Dosage: UNK
  4. LORATADINE [Concomitant]
     Active Substance: LORATADINE
     Dosage: UNK
  5. MELATONIN [Concomitant]
     Active Substance: MELATONIN
     Dosage: UNK
  6. CALCIUM\VITAMIN D [Concomitant]
     Active Substance: CALCIUM\VITAMIN D
     Dosage: UNK
  7. XGEVA [Concomitant]
     Active Substance: DENOSUMAB
     Dosage: UNK
  8. VITAMIN B12 [Concomitant]
     Active Substance: CYANOCOBALAMIN
     Dosage: UNK
  9. FLONASE [Concomitant]
     Active Substance: FLUTICASONE PROPIONATE
     Dosage: UNK
  10. LORAZEPAM [Concomitant]
     Active Substance: LORAZEPAM
     Dosage: UNK
  11. XARELTO [Concomitant]
     Active Substance: RIVAROXABAN
     Dosage: UNK
  12. AMLODIPINE [Concomitant]
     Active Substance: AMLODIPINE BESYLATE
     Dosage: UNK
  13. VITAMINS [Concomitant]
     Active Substance: VITAMINS
     Dosage: UNK
  14. TYLENOL [Concomitant]
     Active Substance: ACETAMINOPHEN
     Dosage: UNK
  15. LUPRON [Concomitant]
     Active Substance: LEUPROLIDE ACETATE
  16. TRIAMCINOLONE ACETONIDE [Concomitant]
     Active Substance: TRIAMCINOLONE ACETONIDE
     Dosage: UNK
  17. OXYCODONE [Concomitant]
     Active Substance: OXYCODONE
     Dosage: UNK
  18. LEVOTHYROXINE [Concomitant]
     Active Substance: LEVOTHYROXINE
     Dosage: UNK
  19. TESTOSTERONE CYPIONATE [Concomitant]
     Active Substance: TESTOSTERONE CYPIONATE
     Dosage: UNK

REACTIONS (16)
  - Thyroid hormones increased [Not Recovered/Not Resolved]
  - Adverse drug reaction [Unknown]
  - Sensitive skin [Recovering/Resolving]
  - Prostatic specific antigen increased [Not Recovered/Not Resolved]
  - Gastrointestinal motility disorder [Unknown]
  - Oral pain [Not Recovered/Not Resolved]
  - Rash pruritic [Recovering/Resolving]
  - Taste disorder [Not Recovered/Not Resolved]
  - Fatigue [Not Recovered/Not Resolved]
  - Nausea [Unknown]
  - Dehydration [Unknown]
  - Metastases to bone [Recovering/Resolving]
  - Blood glucose increased [Recovered/Resolved]
  - Weight decreased [Not Recovered/Not Resolved]
  - Decreased appetite [Unknown]
  - Off label use [Unknown]
